FAERS Safety Report 15987052 (Version 1)
Quarter: 2019Q1

REPORT INFORMATION
  Report Type: Spontaneous
  Country: US (occurrence: US)
  Receive Date: 20190220
  Receipt Date: 20190220
  Transmission Date: 20190418
  Serious: Yes (Life-Threatening)
  Sender: FDA-Public Use
  Company Number: US-PFIZER INC-2019071085

PATIENT
  Age: 81 Year
  Sex: Female
  Weight: 73 kg

DRUGS (2)
  1. LYRICA [Suspect]
     Active Substance: PREGABALIN
     Indication: NERVE INJURY
     Dosage: 75 MG, 1X/DAY (ONCE OR TWICE)
     Route: 048
     Dates: start: 2009, end: 201901
  2. LYRICA [Suspect]
     Active Substance: PREGABALIN
     Dosage: 75 MG, 2X/DAY (ONCE OR TWICE)
     Route: 048
     Dates: start: 2009, end: 201901

REACTIONS (2)
  - Product use issue [Unknown]
  - Pain [Unknown]

NARRATIVE: CASE EVENT DATE: 2009
